FAERS Safety Report 8610358-5 (Version None)
Quarter: 2012Q3

REPORT INFORMATION
  Report Type: 
  Country: None (occurrence: None)
  Receive Date: 20120822
  Receipt Date: 20120816
  Transmission Date: 20120928
  Serious: Yes (Other)
  Sender: FDA-Public Use
  Company Number: PHHY2012LB064144

PATIENT
  Sex: Male

DRUGS (4)
  1. PREDNISONE TAB [Concomitant]
     Indication: SARCOIDOSIS
     Dosage: 7.5 MG, DAILY
     Route: 048
     Dates: start: 20020101
  2. IMATINIB MESYLATE [Suspect]
     Indication: CHRONIC MYELOID LEUKAEMIA
     Dosage: 600 MG, DAILY
     Route: 048
     Dates: start: 20080601
  3. PREDNISONE TAB [Concomitant]
     Dosage: 2.5 MG, DAILY
     Route: 048
  4. RABEPRAZOLE SODIUM [Concomitant]
     Dosage: 1 DF, DAILY
     Route: 048
     Dates: start: 20020101

REACTIONS (2)
  - OCULAR SARCOIDOSIS [None]
  - GLAUCOMA [None]
